FAERS Safety Report 15481252 (Version 1)
Quarter: 2018Q4

REPORT INFORMATION
  Report Type: Spontaneous
  Country: US (occurrence: US)
  Receive Date: 20181010
  Receipt Date: 20181010
  Transmission Date: 20190205
  Serious: No
  Sender: FDA-Public Use
  Company Number: US-BAUSCH-BL-2018-016446

PATIENT
  Age: 92 Year
  Sex: Female
  Weight: 86.71 kg

DRUGS (1)
  1. CHLORDIAZEPOXIDE HYDROCHLORIDE/CLIDINIUM BROMIDE [Suspect]
     Active Substance: CHLORDIAZEPOXIDE HYDROCHLORIDE\CLIDINIUM BROMIDE
     Indication: DIVERTICULITIS
     Route: 048
     Dates: start: 1964, end: 20180605

REACTIONS (6)
  - Malaise [Unknown]
  - Dry mouth [Unknown]
  - Hyperhidrosis [Unknown]
  - Dizziness [Unknown]
  - Sleep disorder [Unknown]
  - Asthenia [Unknown]

NARRATIVE: CASE EVENT DATE: 20180605
